FAERS Safety Report 4461731-0 (Version None)
Quarter: 2004Q3

REPORT INFORMATION
  Report Type: 
  Country: None (occurrence: None)
  Receive Date: 20040929
  Receipt Date: 20040917
  Transmission Date: 20050211
  Serious: Yes (Hospitalization)
  Sender: FDA-Public Use
  Company Number: FR-BRISTOL-MYERS SQUIBB COMPANY-12711859

PATIENT
  Age: 62 Year
  Sex: Male

DRUGS (3)
  1. CETUXIMAB [Suspect]
     Indication: COLORECTAL CANCER METASTATIC
     Dosage: MOST RECENT INFUSION ON 09-SEP-04.
     Route: 041
     Dates: start: 20040624
  2. IRINOTECAN [Suspect]
     Indication: COLORECTAL CANCER METASTATIC
     Dosage: MOST RECENT INFUSION ON 09-SEP-04.
     Route: 042
     Dates: start: 20040624
  3. PARACETAMOL [Suspect]
     Indication: PAIN
     Dates: end: 20040916

REACTIONS (1)
  - JAUNDICE [None]
